FAERS Safety Report 16934793 (Version 1)
Quarter: 2019Q4

REPORT INFORMATION
  Report Type: Spontaneous
  Country: TR (occurrence: TR)
  Receive Date: 20191018
  Receipt Date: 20191018
  Transmission Date: 20200122
  Serious: Yes (Other)
  Sender: FDA-Public Use
  Company Number: TR-TEVA-2019-TR-1125200

PATIENT
  Sex: Male

DRUGS (2)
  1. BUDECORT [Suspect]
     Active Substance: BUDESONIDE
     Indication: ASTHMA
     Dosage: UNKNOWN FORM STRENGTH
     Route: 055
  2. IPRASAL [Suspect]
     Active Substance: ALBUTEROL SULFATE\IPRATROPIUM BROMIDE
     Indication: ASTHMA
     Dosage: UNKNOWN FORM STRENGTH
     Route: 055

REACTIONS (3)
  - Contusion [Unknown]
  - Drug ineffective [Unknown]
  - Dyspnoea [Unknown]
